FAERS Safety Report 9775025 (Version 1)
Quarter: 2013Q4

REPORT INFORMATION
  Report Type: Spontaneous
  Country: US (occurrence: US)
  Receive Date: 20131220
  Receipt Date: 20131220
  Transmission Date: 20140711
  Serious: No
  Sender: FDA-Public Use
  Company Number: US-GLAXOSMITHKLINE-A1040265A

PATIENT
  Age: 73 Year
  Sex: Male

DRUGS (2)
  1. AVODART [Suspect]
     Indication: PROSTATIC ATROPHY
     Dosage: 1CAP PER DAY
     Route: 048
     Dates: start: 20130411, end: 20130709
  2. BICALUTAMIDE [Concomitant]

REACTIONS (2)
  - Breast enlargement [Not Recovered/Not Resolved]
  - Breast tenderness [Unknown]
